FAERS Safety Report 17776106 (Version 2)
Quarter: 2020Q2

REPORT INFORMATION
  Report Type: Spontaneous
  Country: US (occurrence: US)
  Receive Date: 20200513
  Receipt Date: 20200515
  Transmission Date: 20200714
  Serious: No
  Sender: FDA-Public Use
  Company Number: US-PFIZER INC-2020190237

PATIENT
  Age: 79 Year
  Sex: Female

DRUGS (2)
  1. METOPROLOL TARTRATE. [Suspect]
     Active Substance: METOPROLOL TARTRATE
     Dosage: UNK
  2. DOFETILIDE. [Suspect]
     Active Substance: DOFETILIDE
     Indication: ATRIAL FIBRILLATION
     Dosage: 250 UG, 2X/DAY
     Route: 048

REACTIONS (7)
  - Nausea [Unknown]
  - Back pain [Unknown]
  - Fatigue [Recovering/Resolving]
  - Pain [Unknown]
  - Insomnia [Unknown]
  - Decreased appetite [Recovering/Resolving]
  - Weight decreased [Unknown]
